FAERS Safety Report 18269667 (Version 2)
Quarter: 2020Q4

REPORT INFORMATION
  Report Type: Spontaneous
  Country: JP (occurrence: JP)
  Receive Date: 20200916
  Receipt Date: 20201008
  Transmission Date: 20210113
  Serious: Yes (Other)
  Sender: FDA-Public Use
  Company Number: JP-AMGEN-JPNSP2020149517

PATIENT
  Age: 93 Year
  Sex: Female
  Weight: 50 kg

DRUGS (2)
  1. ELDECALCITOL [Concomitant]
     Active Substance: ELDECALCITOL
     Dosage: UNK
     Route: 048
  2. PRALIA [Suspect]
     Active Substance: DENOSUMAB
     Indication: OSTEOPOROSIS
     Dosage: UNK UNK, ONCE EVERY 6 MO, 3 TIMES
     Route: 065

REACTIONS (2)
  - Thoracic vertebral fracture [Unknown]
  - Bone density decreased [Unknown]
